FAERS Safety Report 6257385-3 (Version None)
Quarter: 2009Q3

REPORT INFORMATION
  Report Type: 
  Country: None (occurrence: None)
  Receive Date: 20090701
  Receipt Date: 20090701
  Transmission Date: 20100115
  Serious: No
  Sender: FDA-Public Use
  Company Number: None

PATIENT
  Sex: Male
  Weight: 65.7716 kg

DRUGS (2)
  1. ZICAM COLD REMEDY NASAL GEL MATRIXX INDUSTRIES [Suspect]
     Indication: INFLUENZA
     Dosage: 1-2 PUMPS VARIES NASAL INTERMITENT OVER 4-5 YR
     Route: 045
  2. ZICAM COLD REMEDY NASAL GEL MATRIXX INDUSTRIES [Suspect]
     Indication: NASOPHARYNGITIS
     Dosage: 1-2 PUMPS VARIES NASAL INTERMITENT OVER 4-5 YR
     Route: 045

REACTIONS (1)
  - ANOSMIA [None]
